FAERS Safety Report 11787335 (Version 1)
Quarter: 2015Q4

REPORT INFORMATION
  Report Type: Spontaneous
  Country: US (occurrence: US)
  Receive Date: 20151130
  Receipt Date: 20151130
  Transmission Date: 20160305
  Serious: No
  Sender: FDA-Public Use
  Company Number: US-PFIZER INC-2015385103

PATIENT
  Age: 47 Year
  Sex: Female

DRUGS (1)
  1. ADVIL SINUS CONGESTION AND PAIN [Suspect]
     Active Substance: IBUPROFEN\PHENYLEPHRINE HYDROCHLORIDE
     Indication: SINUS DISORDER
     Dosage: UNK

REACTIONS (1)
  - Drug ineffective for unapproved indication [Unknown]
